FAERS Safety Report 6543900-9 (Version None)
Quarter: 2010Q1

REPORT INFORMATION
  Report Type: 
  Country: None (occurrence: None)
  Receive Date: 20100119
  Receipt Date: 20100119
  Transmission Date: 20100710
  Serious: Yes (Other)
  Sender: FDA-Public Use
  Company Number: None

PATIENT
  Age: 58 Year
  Sex: Female
  Weight: 74.3899 kg

DRUGS (2)
  1. ASPIRIN [Suspect]
     Indication: CARDIOVASCULAR DISORDER
     Dosage: 81 MG  4 TO 8 TABLETS PO
     Route: 048
     Dates: start: 20100104, end: 20100118
  2. MOTRIN [Suspect]
     Indication: HEADACHE
     Dosage: 200 MG 1 TABLET PO
     Route: 048
     Dates: start: 20100104, end: 20100118

REACTIONS (7)
  - ABDOMINAL DISCOMFORT [None]
  - ABDOMINAL PAIN UPPER [None]
  - FLATULENCE [None]
  - HEADACHE [None]
  - MALAISE [None]
  - NAUSEA [None]
  - RETCHING [None]
